FAERS Safety Report 9233195 (Version 2)
Quarter: 2013Q2

REPORT INFORMATION
  Report Type: Spontaneous
  Country: CA (occurrence: CA)
  Receive Date: 20130416
  Receipt Date: 20130429
  Transmission Date: 20140414
  Serious: Yes (Other)
  Sender: FDA-Public Use
  Company Number: CA-JNJFOC-20130405036

PATIENT
  Sex: Female
  Weight: 72.58 kg

DRUGS (7)
  1. NICORETTE QUICKMIST 1MG NICO-SPRAY [Suspect]
     Indication: SMOKING CESSATION THERAPY
     Route: 048
     Dates: start: 2013
  2. NICORETTE QUICKMIST 1MG NICO-SPRAY [Suspect]
     Indication: SMOKING CESSATION THERAPY
     Route: 048
     Dates: start: 2013, end: 2013
  3. PERPHENAZINE [Concomitant]
     Indication: ANXIETY
     Route: 065
  4. CLONAZEPAM [Concomitant]
     Indication: ANXIETY
     Route: 065
  5. OLANZAPINE [Concomitant]
     Indication: ANXIETY
     Route: 065
  6. CITALOPRAM [Concomitant]
     Indication: ANXIETY
     Route: 065
  7. BENZTROPINE [Concomitant]
     Indication: ANXIETY
     Route: 065

REACTIONS (9)
  - Syncope [Recovering/Resolving]
  - Asthenia [Not Recovered/Not Resolved]
  - Feeling abnormal [Recovering/Resolving]
  - Heart rate increased [Recovering/Resolving]
  - Euphoric mood [Not Recovered/Not Resolved]
  - Hiccups [Recovering/Resolving]
  - Vision blurred [Not Recovered/Not Resolved]
  - Dizziness [Not Recovered/Not Resolved]
  - Musculoskeletal chest pain [Not Recovered/Not Resolved]
